FAERS Safety Report 25949346 (Version 1)
Quarter: 2025Q4

REPORT INFORMATION
  Report Type: Spontaneous
  Country: BR (occurrence: BR)
  Receive Date: 20251022
  Receipt Date: 20251022
  Transmission Date: 20260119
  Serious: Yes (Other)
  Sender: BIOMARIN
  Company Number: BR-SANOFI-02683904

PATIENT
  Age: 17 Year
  Sex: Male
  Weight: 76 kg

DRUGS (2)
  1. LARONIDASE [Suspect]
     Active Substance: LARONIDASE
     Indication: Mucopolysaccharidosis I
     Dosage: UNK, QW
     Dates: start: 20130608, end: 2015
  2. LARONIDASE [Suspect]
     Active Substance: LARONIDASE
     Dosage: 30 DF, Q15D
     Dates: start: 2015

REACTIONS (3)
  - Schizophrenia [Unknown]
  - Product prescribing issue [Unknown]
  - Inappropriate schedule of product administration [Unknown]

NARRATIVE: CASE EVENT DATE: 20150101
